FAERS Safety Report 6424538-0 (Version None)
Quarter: 2009Q4

REPORT INFORMATION
  Report Type: 
  Country: None (occurrence: None)
  Receive Date: 20091103
  Receipt Date: 20091027
  Transmission Date: 20100525
  Serious: Yes (Hospitalization)
  Sender: FDA-Public Use
  Company Number: GB-ROCHE-665726

PATIENT
  Sex: Male

DRUGS (4)
  1. CAPECITABINE [Suspect]
     Dosage: LAST DOSE: 21 JULY 2009
     Route: 065
     Dates: start: 20080311
  2. ERLOTINIB [Suspect]
     Dosage: LAST DOSE: 21 JULY 2009.
     Route: 065
     Dates: start: 20080311
  3. BEVACIZUMAB [Suspect]
     Dosage: LAST DOSE: 21 JULY 2009
     Route: 065
     Dates: start: 20080311
  4. GEMCITABINE [Suspect]
     Dosage: LAST DOSE: 21 JULY 2009
     Route: 065
     Dates: start: 20080311

REACTIONS (1)
  - HYPONATRAEMIA [None]
